FAERS Safety Report 11720228 (Version 1)
Quarter: 2015Q4

REPORT INFORMATION
  Report Type: Spontaneous
  Country: US (occurrence: US)
  Receive Date: 20151110
  Receipt Date: 20151110
  Transmission Date: 20160304
  Serious: Yes (Hospitalization, Disabling, Other)
  Sender: FDA-Public Use
  Company Number: US-FERRINGPH-2015FE03790

PATIENT

DRUGS (1)
  1. DESMOPRESSIN [Suspect]
     Active Substance: DESMOPRESSIN
     Indication: HAEMORRHAGE PROPHYLAXIS
     Dosage: UNK

REACTIONS (3)
  - Hyponatraemia [Not Recovered/Not Resolved]
  - Rapid correction of hyponatraemia [Not Recovered/Not Resolved]
  - Osmotic demyelination syndrome [Not Recovered/Not Resolved]
